FAERS Safety Report 5173186-1 (Version None)
Quarter: 2006Q4

REPORT INFORMATION
  Report Type: 
  Country: None (occurrence: None)
  Receive Date: 20061205
  Receipt Date: 20061116
  Transmission Date: 20070319
  Serious: Yes (Hospitalization)
  Sender: FDA-Public Use
  Company Number: 8020383

PATIENT
  Age: 13 Year
  Sex: Female

DRUGS (3)
  1. EQUASYM [Suspect]
     Dosage: 20 MG
     Dates: end: 20060101
  2. EQUASYM [Suspect]
     Dosage: 30 MG
     Dates: start: 20060101
  3. EQUASYM [Suspect]
     Dosage: 20 MG
     Dates: start: 20060101

REACTIONS (1)
  - URINARY RETENTION [None]
